FAERS Safety Report 5880643-9 (Version None)
Quarter: 2008Q3

REPORT INFORMATION
  Report Type: 
  Country: None (occurrence: None)
  Receive Date: 20080912
  Receipt Date: 20080606
  Transmission Date: 20090109
  Serious: No
  Sender: FDA-Public Use
  Company Number: US-ABBOTT-08P-163-0455988-00

PATIENT
  Sex: Female
  Weight: 44.038 kg

DRUGS (5)
  1. HUMIRA [Suspect]
     Indication: CROHN'S DISEASE
     Route: 058
     Dates: start: 20080501
  2. HUMIRA [Suspect]
     Route: 058
     Dates: start: 20080501
  3. HUMIRA [Suspect]
     Route: 058
  4. CIPROFLOXACIN [Concomitant]
     Indication: GASTROINTESTINAL INFLAMMATION
     Route: 048
  5. FOSAMAX PLUS D [Concomitant]
     Indication: OSTEOPENIA
     Route: 048

REACTIONS (7)
  - INJECTION SITE DISCOLOURATION [None]
  - INJECTION SITE ERYTHEMA [None]
  - INJECTION SITE IRRITATION [None]
  - INJECTION SITE PAPULE [None]
  - INJECTION SITE PRURITUS [None]
  - INJECTION SITE REACTION [None]
  - INJECTION SITE WARMTH [None]
